FAERS Safety Report 9422710 (Version 2)
Quarter: 2013Q3

REPORT INFORMATION
  Report Type: Spontaneous
  Country: US (occurrence: US)
  Receive Date: 20130726
  Receipt Date: 20130731
  Transmission Date: 20140515
  Serious: No
  Sender: FDA-Public Use
  Company Number: US-009507513-1306USA012106

PATIENT
  Age: 74 Year
  Sex: Male
  Weight: 65.76 kg

DRUGS (6)
  1. CLARITIN-D-24 [Suspect]
     Indication: NASAL CONGESTION
     Dosage: 10 MG, ONCE
     Route: 048
     Dates: start: 20130602
  2. DILTIAZEM HYDROCHLORIDE [Concomitant]
     Indication: MYOCARDIAL INFARCTION
     Dosage: UNK, UNKNOWN
  3. CARVEDILOL [Concomitant]
     Indication: MYOCARDIAL INFARCTION
     Dosage: UNK, UNKNOWN
  4. TAMSULOSIN HYDROCHLORIDE [Concomitant]
     Indication: URINARY TRACT DISORDER
     Dosage: UNK, UNKNOWN
  5. FLUTICASONE [Concomitant]
     Indication: NASAL CONGESTION
     Dosage: UNK, UNKNOWN
  6. BUPROPION HYDROCHLORIDE [Concomitant]
     Indication: DEPRESSION
     Dosage: UNK, UNKNOWN

REACTIONS (2)
  - Dizziness [Recovered/Resolved]
  - Drug ineffective [Unknown]
